FAERS Safety Report 5766063-6 (Version None)
Quarter: 2008Q2

REPORT INFORMATION
  Report Type: 
  Country: None (occurrence: None)
  Receive Date: 20080611
  Receipt Date: 20071029
  Transmission Date: 20081010
  Serious: No
  Sender: FDA-Public Use
  Company Number: US-BRISTOL-MYERS SQUIBB COMPANY-13959002

PATIENT
  Age: 38 Year
  Sex: Female

DRUGS (4)
  1. MONOPRIL [Suspect]
     Route: 048
  2. KLONOPIN [Concomitant]
     Route: 048
  3. LUVOX [Concomitant]
     Route: 048
  4. SYNTHROID [Concomitant]
     Route: 048

REACTIONS (1)
  - TINNITUS [None]
